FAERS Safety Report 25261907 (Version 2)
Quarter: 2025Q2

REPORT INFORMATION
  Report Type: Spontaneous
  Country: CA (occurrence: CA)
  Receive Date: 20250502
  Receipt Date: 20250515
  Transmission Date: 20250716
  Serious: Yes (Other)
  Sender: APOTEX
  Company Number: CA-APOTEX-2023AP005805

PATIENT

DRUGS (1)
  1. APIXABAN [Suspect]
     Active Substance: APIXABAN
     Indication: Product used for unknown indication
     Route: 065

REACTIONS (6)
  - Diverticulitis [Unknown]
  - Constipation [Unknown]
  - Product label confusion [Unknown]
  - Gastrointestinal disorder [Unknown]
  - Product substitution issue [Unknown]
  - Dehydration [Unknown]
